FAERS Safety Report 5294250-2 (Version None)
Quarter: 2007Q2

REPORT INFORMATION
  Report Type: 
  Country: None (occurrence: None)
  Receive Date: 20070409
  Receipt Date: 20070409
  Transmission Date: 20071010
  Serious: No
  Sender: FDA-Public Use
  Company Number: None

PATIENT
  Age: 58 Year
  Sex: Female
  Weight: 82 kg

DRUGS (1)
  1. DEPAKOTE [Suspect]
     Dosage: 250 MG BID PO
     Route: 048

REACTIONS (1)
  - AMMONIA INCREASED [None]
